FAERS Safety Report 21038449 (Version 1)
Quarter: 2022Q3

REPORT INFORMATION
  Report Type: Report from Study
  Country: DE (occurrence: DE)
  Receive Date: 20220704
  Receipt Date: 20220704
  Transmission Date: 20221026
  Serious: Yes (Other)
  Sender: FDA-Public Use
  Company Number: DE-KYOWAKIRIN-2022BKK009682

PATIENT

DRUGS (2)
  1. CRYSVITA [Suspect]
     Active Substance: BUROSUMAB-TWZA
     Indication: Product used for unknown indication
     Dosage: 0.72 MG/KG, 1X/2 WEEKS (START NOV/DEC 2019)
     Route: 058
  2. METHYLPHENIDATE [Concomitant]
     Active Substance: METHYLPHENIDATE
     Indication: Product used for unknown indication
     Dosage: 10
     Route: 065

REACTIONS (2)
  - Growth retardation [Unknown]
  - Overweight [Unknown]
